FAERS Safety Report 7802620-0 (Version None)
Quarter: 2011Q4

REPORT INFORMATION
  Report Type: 
  Country: None (occurrence: None)
  Receive Date: 20111007
  Receipt Date: 20110826
  Transmission Date: 20120403
  Serious: Yes (Other)
  Sender: FDA-Public Use
  Company Number: US-BAYER-2011-034347

PATIENT
  Age: 53 Year
  Sex: Female

DRUGS (2)
  1. NEXAVAR [Suspect]
     Indication: RENAL CELL CARCINOMA
     Dosage: 400 MG, BID
     Route: 048
     Dates: start: 20110201, end: 20110101
  2. NEXAVAR [Suspect]
     Dosage: 400 MG, BID
     Route: 048
     Dates: start: 20110101

REACTIONS (14)
  - VOMITING [None]
  - GASTROOESOPHAGEAL REFLUX DISEASE [None]
  - FUNGAL INFECTION [None]
  - DIARRHOEA [None]
  - NASOPHARYNGITIS [None]
  - GLUCOSE URINE PRESENT [None]
  - PALMAR-PLANTAR ERYTHRODYSAESTHESIA SYNDROME [None]
  - DRY SKIN [None]
  - NAUSEA [None]
  - VAGINITIS BACTERIAL [None]
  - NEPHROLITHIASIS [None]
  - PARAESTHESIA [None]
  - COUGH [None]
  - NASAL CONGESTION [None]
